FAERS Safety Report 9886693 (Version 2)
Quarter: 2014Q1

REPORT INFORMATION
  Report Type: Report from Study
  Country: AR (occurrence: AR)
  Receive Date: 20140210
  Receipt Date: 20140212
  Transmission Date: 20141002
  Serious: Yes (Other)
  Sender: FDA-Public Use
  Company Number: PHHY2014AR016187

PATIENT
  Age: 54 Year
  Sex: Male

DRUGS (2)
  1. EXFORGE [Suspect]
     Indication: HYPERTENSION
     Dosage: 1 DF (160/5MG), DAILY
     Route: 048
     Dates: end: 20131107
  2. EXFORGE [Suspect]
     Dosage: 1 DF (160/5MG), DAILY
     Route: 048

REACTIONS (1)
  - Coeliac disease [Unknown]
